FAERS Safety Report 25477860 (Version 1)
Quarter: 2025Q2

REPORT INFORMATION
  Report Type: Spontaneous
  Country: DE (occurrence: DE)
  Receive Date: 20250625
  Receipt Date: 20250625
  Transmission Date: 20250717
  Serious: Yes (Other)
  Sender: AMGEN
  Company Number: None

PATIENT
  Age: 55 Year
  Sex: Female
  Weight: 77 kg

DRUGS (1)
  1. AIMOVIG [Suspect]
     Active Substance: ERENUMAB-AOOE
     Indication: Migraine
     Route: 030
     Dates: start: 20240701

REACTIONS (4)
  - Arrhythmia [Recovering/Resolving]
  - Weight increased [Recovered/Resolved]
  - Constipation [Recovered/Resolved]
  - Palpitations [Recovering/Resolving]
